FAERS Safety Report 8567900-2 (Version None)
Quarter: 2012Q3

REPORT INFORMATION
  Report Type: 
  Country: None (occurrence: None)
  Receive Date: 20120803
  Receipt Date: 20120725
  Transmission Date: 20120928
  Serious: Yes (Hospitalization)
  Sender: FDA-Public Use
  Company Number: DE-PFIZER INC-2011178523

PATIENT
  Age: 76 Year
  Sex: Male
  Weight: 63 kg

DRUGS (2)
  1. BOSENTAN [Concomitant]
     Dosage: 125 MG, 2X/DAY
     Dates: start: 20110413
  2. REVATIO [Suspect]
     Indication: PULMONARY ARTERIAL HYPERTENSION
     Dosage: 20 MG, 3X/DAY
     Dates: start: 20110615, end: 20110803

REACTIONS (1)
  - ACUTE CORONARY SYNDROME [None]
